FAERS Safety Report 9096787 (Version 4)
Quarter: 2014Q1

REPORT INFORMATION
  Report Type: Spontaneous
  Country: JP (occurrence: JP)
  Receive Date: 20130211
  Receipt Date: 20140121
  Transmission Date: 20141002
  Serious: Yes (Hospitalization)
  Sender: FDA-Public Use
  Company Number: JP-OTSUKA-JP-2013-10284

PATIENT
  Age: 59 Year
  Sex: Male

DRUGS (4)
  1. PLETAAL [Suspect]
     Indication: PERIPHERAL ARTERIAL OCCLUSIVE DISEASE
     Dosage: 100 MG MILLIGRAM(S), QD
     Route: 048
  2. ASPIRIN [Suspect]
     Dosage: 100 MG MILLIGRAM(S), QD
     Route: 065
  3. PLAVIX [Suspect]
     Dosage: 75 MG MILLIGRAM(S), QD
     Route: 048
  4. ANTIPYRETICS, ANALGESICS ANTIPYRETICS, ANALGESICS AGENTS [Suspect]
     Indication: PAIN IN EXTREMITY
     Dosage: UNK
     Route: 048

REACTIONS (2)
  - Shock haemorrhagic [Unknown]
  - Upper gastrointestinal haemorrhage [Unknown]
